FAERS Safety Report 14301151 (Version 4)
Quarter: 2018Q1

REPORT INFORMATION
  Report Type: Report from Study
  Country: IL (occurrence: IL)
  Receive Date: 20171219
  Receipt Date: 20180328
  Transmission Date: 20180509
  Serious: Yes (Other)
  Sender: FDA-Public Use
  Company Number: IL-TEVA-2017-IL-832964

PATIENT
  Age: 51 Year
  Sex: Female

DRUGS (1)
  1. COPAXONE [Suspect]
     Active Substance: GLATIRAMER ACETATE
     Indication: RELAPSING-REMITTING MULTIPLE SCLEROSIS
     Route: 058
     Dates: start: 20150322

REACTIONS (4)
  - Dyspnoea [Recovering/Resolving]
  - Choking [Recovering/Resolving]
  - Inappropriate schedule of drug administration [Unknown]
  - Laryngospasm [Recovering/Resolving]

NARRATIVE: CASE EVENT DATE: 201707
